FAERS Safety Report 8958548 (Version 1)
Quarter: 2012Q4

REPORT INFORMATION
  Report Type: Spontaneous
  Country: KR (occurrence: None)
  Receive Date: 20121128
  Receipt Date: 20121128
  Transmission Date: 20130627
  Serious: Yes (Other)
  Sender: FDA-Public Use
  Company Number: B0846712A

PATIENT
  Age: 57 Year
  Sex: Male

DRUGS (1)
  1. EPIVIR [Suspect]
     Indication: ANTIVIRAL PROPHYLAXIS

REACTIONS (2)
  - Hepatitis B [None]
  - Treatment failure [None]
